FAERS Safety Report 9518378 (Version 1)
Quarter: 2013Q3

REPORT INFORMATION
  Report Type: Spontaneous
  Country: US (occurrence: None)
  Receive Date: 20130910
  Receipt Date: 20130910
  Transmission Date: 20140515
  Serious: Yes (Death)
  Sender: FDA-Public Use
  Company Number: FK201304164

PATIENT
  Age: 05 Year
  Sex: Female

DRUGS (8)
  1. IRINOTECAN (MANUFACTURER UNKNOWN) (IRINOTECAN) (IRINOTECAN) [Suspect]
     Indication: ALVEOLAR RHABDOMYOSARCOMA
  2. TOPOTECAN [Suspect]
     Indication: ALVEOLAR RHABDOMYOSARCOMA
  3. ETOPOSIDE [Suspect]
     Indication: ALVEOLAR RHABDOMYOSARCOMA
  4. PEMETREXED [Suspect]
     Indication: ALVEOLAR RHABDOMYOSARCOMA
  5. CYCLOPHOSPHAMIDE (MANUFACTURER UNKNOWN) (CYCLOPHOSPHAMIDE) (CYCLOPHOSPHAMIDE) [Suspect]
     Indication: ALVEOLAR RHABDOMYOSARCOMA
  6. TEMOZOLOMIDE [Suspect]
     Indication: ALVEOLAR RHABDOMYOSARCOMA
  7. VINORELBINE [Suspect]
     Indication: ALVEOLAR RHABDOMYOSARCOMA
  8. VINCRISTINE [Suspect]
     Indication: ALVEOLAR RHABDOMYOSARCOMA

REACTIONS (2)
  - Alveolar rhabdomyosarcoma [None]
  - Malignant neoplasm progression [None]
